FAERS Safety Report 21476318 (Version 1)
Quarter: 2022Q4

REPORT INFORMATION
  Report Type: Spontaneous
  Country: US (occurrence: US)
  Receive Date: 20221019
  Receipt Date: 20221019
  Transmission Date: 20230113
  Serious: No
  Sender: FDA-Public Use
  Company Number: US-CELLTRION INC.-2021US016351

PATIENT

DRUGS (2)
  1. INFLECTRA [Suspect]
     Active Substance: INFLIXIMAB-DYYB
     Indication: Rheumatoid arthritis
     Dosage: 5MG/KG, LOADING DOSE INFUSED
     Route: 065
     Dates: start: 20211018, end: 20211101
  2. INFLECTRA [Suspect]
     Active Substance: INFLIXIMAB-DYYB
     Dosage: UNK (INJECT 400 MG OF INFLECTRA FREQUENCY: EVERY 8 WEEKS)
     Route: 065

REACTIONS (4)
  - Viral infection [Recovered/Resolved]
  - Product dose omission issue [Unknown]
  - Product prescribing issue [Unknown]
  - Overdose [Unknown]

NARRATIVE: CASE EVENT DATE: 20211101
